FAERS Safety Report 12219384 (Version 2)
Quarter: 2016Q2

REPORT INFORMATION
  Report Type: Report from Study
  Country: US (occurrence: US)
  Receive Date: 20160329
  Receipt Date: 20160428
  Transmission Date: 20160815
  Serious: Yes (Hospitalization)
  Sender: FDA-Public Use
  Company Number: US-ACTELION-A-NJ2016-133532

PATIENT
  Age: 76 Year
  Sex: Female

DRUGS (8)
  1. AZELASTINE [Concomitant]
     Active Substance: AZELASTINE
     Dosage: 137 UNK, BID
  2. ALDACTONE [Concomitant]
     Active Substance: SPIRONOLACTONE
  3. TRACLEER [Suspect]
     Active Substance: BOSENTAN
     Indication: PULMONARY HYPERTENSION
     Dosage: 125 MG, BID
     Route: 048
  4. ADCIRCA [Concomitant]
     Active Substance: TADALAFIL
  5. ESTRADIOL. [Concomitant]
     Active Substance: ESTRADIOL
     Dosage: 0.5 MG, UNK
  6. TRAZODONE [Concomitant]
     Active Substance: TRAZODONE HYDROCHLORIDE
     Dosage: 18 MEQ, UNK
  7. SPIRIVA [Concomitant]
     Active Substance: TIOTROPIUM BROMIDE MONOHYDRATE
     Dosage: 180 MG, UNK
  8. WARFARIN [Concomitant]
     Active Substance: WARFARIN
     Dosage: 10 MG, UNK

REACTIONS (1)
  - Pulmonary embolism [Recovering/Resolving]
